FAERS Safety Report 5336639-9 (Version None)
Quarter: 2007Q2

REPORT INFORMATION
  Report Type: 
  Country: None (occurrence: None)
  Receive Date: 20070529
  Receipt Date: 20070503
  Transmission Date: 20071010
  Serious: Yes (Hospitalization)
  Sender: FDA-Public Use
  Company Number: US-JNJFOC-20061204747

PATIENT
  Sex: Female
  Weight: 77.11 kg

DRUGS (2)
  1. ORTHO EVRA [Suspect]
     Indication: CONTRACEPTION
     Route: 062
  2. PAXIL [Concomitant]

REACTIONS (3)
  - HYSTERECTOMY [None]
  - RASH [None]
  - THROMBOSIS [None]
